FAERS Safety Report 4594335-X (Version None)
Quarter: 2005Q1

REPORT INFORMATION
  Report Type: 
  Country: None (occurrence: None)
  Receive Date: 20050301
  Receipt Date: 20041019
  Transmission Date: 20050727
  Serious: No
  Sender: FDA-Public Use
  Company Number: US-GLAXOSMITHKLINE-A0530390A

PATIENT
  Age: 41 Year
  Sex: Male

DRUGS (3)
  1. VALTREX [Suspect]
     Dosage: 1G TWICE PER DAY
     Route: 048
     Dates: start: 20041017, end: 20041018
  2. LISINOPRIL [Concomitant]
  3. ZESTRIL [Concomitant]
     Route: 065

REACTIONS (2)
  - PENILE SWELLING [None]
  - SCROTAL SWELLING [None]
